FAERS Safety Report 9220405 (Version 3)
Quarter: 2019Q3

REPORT INFORMATION
  Report Type: Spontaneous
  Country: PL (occurrence: PL)
  Receive Date: 20130409
  Receipt Date: 20190930
  Transmission Date: 20191005
  Serious: Yes (Other)
  Sender: FDA-Public Use
  Company Number: PHHY2013PL007832

PATIENT
  Age: 38 Year
  Sex: Female

DRUGS (3)
  1. PARACETAMOL [Suspect]
     Active Substance: ACETAMINOPHEN
     Indication: NASOPHARYNGITIS
     Dosage: UNK
     Route: 065
  2. IMATINIB MESILATE [Suspect]
     Active Substance: IMATINIB MESYLATE
     Dosage: 400 MG, QD
     Route: 065
     Dates: start: 2006
  3. IMATINIB MESILATE [Suspect]
     Active Substance: IMATINIB MESYLATE
     Indication: CHRONIC MYELOID LEUKAEMIA
     Dosage: 400 MG, QD
     Route: 065
     Dates: start: 200505, end: 200602

REACTIONS (6)
  - Liver injury [Recovered/Resolved]
  - Tongue discolouration [Recovered/Resolved]
  - Jaundice [Unknown]
  - Therapy non-responder [Unknown]
  - Hepatotoxicity [Recovered/Resolved]
  - Drug intolerance [Unknown]

NARRATIVE: CASE EVENT DATE: 200602
